FAERS Safety Report 5097421-3 (Version None)
Quarter: 2006Q3

REPORT INFORMATION
  Report Type: 
  Country: None (occurrence: None)
  Receive Date: 20060905
  Receipt Date: 20060818
  Transmission Date: 20061208
  Serious: Yes (Hospitalization)
  Sender: FDA-Public Use
  Company Number: 200610490

PATIENT
  Age: 42 Year
  Sex: Female
  Weight: 45 kg

DRUGS (5)
  1. CARIMUNE [Suspect]
     Indication: PANEL-REACTIVE ANTIBODY INCREASED
     Dosage: 45 G QD IV
     Route: 042
  2. LEVOTHYROXINE SODIUM [Concomitant]
  3. PANTOPRAZOLE SODIUM [Concomitant]
  4. SIMVASTATIN [Concomitant]
  5. SEVELAMER [Concomitant]

REACTIONS (2)
  - CONDITION AGGRAVATED [None]
  - HYPONATRAEMIA [None]
